FAERS Safety Report 12632762 (Version 2)
Quarter: 2016Q3

REPORT INFORMATION
  Report Type: Spontaneous
  Country: US (occurrence: US)
  Receive Date: 20160808
  Receipt Date: 20160808
  Transmission Date: 20161109
  Serious: No
  Sender: FDA-Public Use
  Company Number: US-BEH-2015056836

PATIENT
  Sex: Female
  Weight: 103 kg

DRUGS (16)
  1. ACETAMINOPHEN. [Concomitant]
     Active Substance: ACETAMINOPHEN
  2. CETIRIZINE [Concomitant]
     Active Substance: CETIRIZINE HYDROCHLORIDE
  3. PROAIR HFA [Concomitant]
     Active Substance: ALBUTEROL SULFATE
  4. HIZENTRA [Suspect]
     Active Substance: HUMAN IMMUNOGLOBULIN G
     Indication: SELECTIVE IGG SUBCLASS DEFICIENCY
     Route: 058
  5. MULTIVITAMINS [Concomitant]
     Active Substance: VITAMINS
  6. BIOTIN [Concomitant]
     Active Substance: BIOTIN
  7. MOTRIN [Concomitant]
     Active Substance: IBUPROFEN
  8. BIAXIN [Concomitant]
     Active Substance: CLARITHROMYCIN
  9. AUGMENTIN [Concomitant]
     Active Substance: AMOXICILLIN\CLAVULANATE POTASSIUM
  10. HIZENTRA [Suspect]
     Active Substance: HUMAN IMMUNOGLOBULIN G
     Indication: HUMORAL IMMUNE DEFECT
     Route: 058
  11. EPIPEN [Concomitant]
     Active Substance: EPINEPHRINE
  12. NASONEX [Concomitant]
     Active Substance: MOMETASONE FUROATE
  13. FLAXSEED [Concomitant]
     Active Substance: FLAX SEED
  14. HIZENTRA [Suspect]
     Active Substance: HUMAN IMMUNOGLOBULIN G
     Route: 058
  15. BENADRYL [Concomitant]
     Active Substance: DIPHENHYDRAMINE HYDROCHLORIDE
  16. ACIDOPHILUS [Concomitant]
     Active Substance: LACTOBACILLUS ACIDOPHILUS

REACTIONS (2)
  - Fungal infection [Unknown]
  - Sinusitis [Unknown]
